FAERS Safety Report 6852819-5 (Version None)
Quarter: 2010Q3

REPORT INFORMATION
  Report Type: 
  Country: None (occurrence: None)
  Receive Date: 20100717
  Receipt Date: 20080105
  Transmission Date: 20110219
  Serious: Yes (Other)
  Sender: FDA-Public Use
  Company Number: US-PFIZER INC-2007099099

PATIENT
  Sex: Female
  Weight: 61 kg

DRUGS (2)
  1. CHANTIX [Suspect]
     Indication: SMOKING CESSATION THERAPY
     Dates: start: 20071101, end: 20071101
  2. YASMIN [Concomitant]

REACTIONS (9)
  - DEPRESSION [None]
  - ERYTHEMA [None]
  - MALAISE [None]
  - NAUSEA [None]
  - PERSONALITY CHANGE [None]
  - SELF INJURIOUS BEHAVIOUR [None]
  - SOCIAL ALCOHOL DRINKER [None]
  - SUICIDAL IDEATION [None]
  - TACHYPHRENIA [None]
